FAERS Safety Report 6552322-6 (Version None)
Quarter: 2010Q1

REPORT INFORMATION
  Report Type: 
  Country: None (occurrence: None)
  Receive Date: 20100120
  Receipt Date: 20100104
  Transmission Date: 20100710
  Serious: Yes (Other)
  Sender: FDA-Public Use
  Company Number: 2009-0382

PATIENT
  Age: 10 Year
  Sex: Male
  Weight: 19.8 kg

DRUGS (4)
  1. INCRELEX [Suspect]
     Indication: DWARFISM
     Dosage: SEE IMAGE
     Route: 058
     Dates: start: 20070207, end: 20070313
  2. INCRELEX [Suspect]
     Indication: DWARFISM
     Dosage: SEE IMAGE
     Route: 058
     Dates: start: 20080617, end: 20080622
  3. INCRELEX [Suspect]
     Indication: DWARFISM
     Dosage: SEE IMAGE
     Route: 058
     Dates: start: 20080623, end: 20080627
  4. INCRELEX [Suspect]

REACTIONS (10)
  - ANGIOEDEMA [None]
  - COUGH [None]
  - HYPERSENSITIVITY [None]
  - INJECTION SITE ERYTHEMA [None]
  - INJECTION SITE HAEMATOMA [None]
  - INJECTION SITE INDURATION [None]
  - INJECTION SITE URTICARIA [None]
  - INJECTION SITE WARMTH [None]
  - SWELLING FACE [None]
  - URTICARIA [None]
